FAERS Safety Report 10224149 (Version 2)
Quarter: 2014Q2

REPORT INFORMATION
  Report Type: Spontaneous
  Country: ES (occurrence: None)
  Receive Date: 20140605
  Receipt Date: 20140625
  Transmission Date: 20141212
  Serious: Yes (Other)
  Sender: FDA-Public Use
  Company Number: SYM-2014-21445

PATIENT
  Age: 65 Year
  Sex: Female

DRUGS (7)
  1. HERBESSER (DILTIAZEM HYDROCHLORIDE) (DILTIAZEM HYDROCHLORIDE) [Suspect]
     Indication: HYPERTENSION
  2. OMEPRAZOLE (OMEPRAZOLE) [Concomitant]
  3. LEVOTHYROXINE SODIUM (LEVOTHYROXINE SODIUM) [Concomitant]
  4. CO-DIOVAN (HYDROCHLOROTHIAZIDE, VALSARTAN) [Concomitant]
  5. ATORVASTATIN CALCIUM (ATORVASTATIN CALCIUM) [Concomitant]
  6. EPROSARTAN (EPROSARTAN) [Concomitant]
  7. HYDROCHLOROTHIAZIDE (HYDROCHLOROTHIAZIDE) [Concomitant]

REACTIONS (6)
  - Drug reaction with eosinophilia and systemic symptoms [None]
  - Drug reaction with eosinophilia and systemic symptoms [None]
  - Asthenia [None]
  - Lymphadenopathy [None]
  - Rash pruritic [None]
  - Rash erythematous [None]
